FAERS Safety Report 10058580 (Version 1)
Quarter: 2014Q2

REPORT INFORMATION
  Report Type: Not Available
  Country: GB (occurrence: GB)
  Receive Date: 20140404
  Receipt Date: 20140404
  Transmission Date: 20141212
  Serious: Yes (Hospitalization, Other)
  Sender: FDA-Public Use
  Company Number: GB-ASTELLAS-2014EU003543

PATIENT
  Age: 66 Year
  Sex: Female

DRUGS (3)
  1. YM178 [Suspect]
     Indication: HYPERTONIC BLADDER
     Dosage: 50 MG, UNKNOWN/D
     Route: 048
     Dates: start: 201212, end: 201212
  2. BISOPROLOL [Concomitant]
     Dosage: UNK
     Route: 065
  3. DILTIAZEM [Concomitant]
     Dosage: UNK
     Route: 065

REACTIONS (2)
  - Extrasystoles [Recovered/Resolved]
  - Bradycardia [Recovered/Resolved]
